FAERS Safety Report 5609807-6 (Version None)
Quarter: 2008Q1

REPORT INFORMATION
  Report Type: 
  Country: None (occurrence: None)
  Receive Date: 20080131
  Receipt Date: 20071204
  Transmission Date: 20080703
  Serious: No
  Sender: FDA-Public Use
  Company Number: US-BAYER-200714052BCC

PATIENT
  Age: 71 Year
  Sex: Female
  Weight: 61 kg

DRUGS (10)
  1. ALEVE [Suspect]
     Indication: ARTHRALGIA
     Dosage: UNIT DOSE: 220 MG
     Route: 048
     Dates: start: 20071104
  2. LIPITOR [Concomitant]
  3. OMEPRAZOLE [Concomitant]
  4. SIMVASTATIN [Concomitant]
  5. TEMAZEPAM [Concomitant]
  6. AMITRIPTYLINE HCL [Concomitant]
  7. DIAZEPAM [Concomitant]
  8. HYDROCODONE BITARTRATE [Concomitant]
  9. MILK OF MAGNESIA TAB [Concomitant]
  10. CALCIUM GLUCONATE [Concomitant]

REACTIONS (3)
  - ARTHRALGIA [None]
  - BACK PAIN [None]
  - SINUS HEADACHE [None]
